FAERS Safety Report 12099452 (Version 2)
Quarter: 2017Q1

REPORT INFORMATION
  Report Type: Spontaneous
  Country: US (occurrence: US)
  Receive Date: 20160222
  Receipt Date: 20170220
  Transmission Date: 20170428
  Serious: No
  Sender: FDA-Public Use
  Company Number: US-TEVA-631414USA

PATIENT
  Age: 79 Year
  Sex: Female
  Weight: 48.12 kg

DRUGS (3)
  1. AMOXICILLIN. [Suspect]
     Active Substance: AMOXICILLIN
     Indication: SINUSITIS
     Route: 065
  2. IBRANCE [Suspect]
     Active Substance: PALBOCICLIB
     Indication: BREAST CANCER
     Dosage: DAY 1-21, EVERY 28 DAYS
     Route: 048
     Dates: start: 20151017
  3. XGEVA [Suspect]
     Active Substance: DENOSUMAB
     Route: 065

REACTIONS (5)
  - Pain in jaw [Unknown]
  - Nausea [Recovered/Resolved]
  - White blood cell count increased [Unknown]
  - Drug ineffective [Unknown]
  - Vomiting [Recovered/Resolved]
